FAERS Safety Report 10005052 (Version 3)
Quarter: 2015Q3

REPORT INFORMATION
  Report Type: Spontaneous
  Country: US (occurrence: US)
  Receive Date: 20140312
  Receipt Date: 20150813
  Transmission Date: 20151125
  Serious: No
  Sender: FDA-Public Use
  Company Number: US-GILEAD-2013-0067491

PATIENT
  Age: 66 Year
  Sex: Female
  Weight: 66.21 kg

DRUGS (11)
  1. AMLODIPINE BESYLATE. [Concomitant]
     Active Substance: AMLODIPINE BESYLATE
  2. TRAMADOL. [Concomitant]
     Active Substance: TRAMADOL
  3. OMEPRAZOLE. [Concomitant]
     Active Substance: OMEPRAZOLE
  4. ADCIRCA [Concomitant]
     Active Substance: TADALAFIL
  5. ACETAMINOPHEN. [Concomitant]
     Active Substance: ACETAMINOPHEN
  6. LETAIRIS [Suspect]
     Active Substance: AMBRISENTAN
     Indication: SCLERODERMA
  7. LISINOPRIL. [Concomitant]
     Active Substance: LISINOPRIL
  8. CLOBETASOL PROPIONATE. [Concomitant]
     Active Substance: CLOBETASOL PROPIONATE
  9. HYDROCHLOROTHIAZIDE. [Concomitant]
     Active Substance: HYDROCHLOROTHIAZIDE
  10. LETAIRIS [Suspect]
     Active Substance: AMBRISENTAN
     Indication: PULMONARY HYPERTENSION
     Dosage: 10 MG, QD
     Route: 048
     Dates: start: 20120423
  11. VENTAVIS [Concomitant]
     Active Substance: ILOPROST

REACTIONS (3)
  - Blood pressure decreased [Unknown]
  - Headache [Unknown]
  - Visual impairment [Unknown]
